FAERS Safety Report 6602668-8 (Version None)
Quarter: 2010Q1

REPORT INFORMATION
  Report Type: 
  Country: None (occurrence: None)
  Receive Date: 20100218
  Receipt Date: 20100210
  Transmission Date: 20100710
  Serious: Yes (Other)
  Sender: FDA-Public Use
  Company Number: 2010SP008464

PATIENT
  Age: 20 Year
  Sex: Female

DRUGS (1)
  1. SAPHRIS [Suspect]
     Indication: DRUG USE FOR UNKNOWN INDICATION
     Dosage: 5 MG
     Dates: start: 20100101

REACTIONS (3)
  - ASTHENIA [None]
  - DEAFNESS [None]
  - DISSOCIATIVE DISORDER [None]
